FAERS Safety Report 24233026 (Version 2)
Quarter: 2024Q3

REPORT INFORMATION
  Report Type: Spontaneous
  Country: US (occurrence: US)
  Receive Date: 20240821
  Receipt Date: 20240824
  Transmission Date: 20241017
  Serious: Yes (Other)
  Sender: ACCORD
  Company Number: US-Accord-441699

PATIENT
  Age: 64 Year
  Sex: Male

DRUGS (8)
  1. METHOTREXATE [Suspect]
     Active Substance: METHOTREXATE
     Indication: Rheumatoid arthritis
  2. ELIQUIS [Concomitant]
     Active Substance: APIXABAN
  3. DAPAGLIFLOZIN [Concomitant]
     Active Substance: DAPAGLIFLOZIN
  4. METHYLPREDNISOLONE [Concomitant]
     Active Substance: METHYLPREDNISOLONE
  5. MONTELUKAST [Concomitant]
     Active Substance: MONTELUKAST SODIUM
  6. PANTOPRAZOLE [Concomitant]
     Active Substance: PANTOPRAZOLE
  7. ROSUVASTATIN [Concomitant]
     Active Substance: ROSUVASTATIN\ROSUVASTATIN CALCIUM
  8. SOTALOL [Concomitant]
     Active Substance: SOTALOL\SOTALOL HYDROCHLORIDE

REACTIONS (14)
  - COVID-19 [Unknown]
  - Arrhythmia [Unknown]
  - Gait inability [Unknown]
  - Blood sodium decreased [Unknown]
  - Blood electrolytes decreased [Unknown]
  - Herpes zoster [Unknown]
  - Abdominal hernia [Unknown]
  - Fatigue [Unknown]
  - Weight decreased [Unknown]
  - Immune system disorder [Unknown]
  - Pneumonia [Unknown]
  - Sepsis [Unknown]
  - Atrial fibrillation [Unknown]
  - Diarrhoea [Unknown]
